FAERS Safety Report 8508341-3 (Version None)
Quarter: 2012Q3

REPORT INFORMATION
  Report Type: 
  Country: None (occurrence: None)
  Receive Date: 20120713
  Receipt Date: 20120704
  Transmission Date: 20120928
  Serious: Yes (Other)
  Sender: FDA-Public Use
  Company Number: CA-JNJFOC-20120702451

PATIENT
  Sex: Female
  Weight: 47 kg

DRUGS (10)
  1. CADUET [Concomitant]
     Route: 065
  2. CETIRIZINE HCL [Concomitant]
     Route: 065
  3. METFORMIN HYDROCHLORIDE [Concomitant]
     Route: 065
  4. ASPIRIN [Concomitant]
     Route: 065
  5. PERIDEX [Concomitant]
     Route: 065
  6. APOKYN [Concomitant]
     Route: 065
  7. REMICADE [Suspect]
     Indication: RHEUMATOID ARTHRITIS
     Route: 042
     Dates: start: 20000919
  8. NITROGLYCERIN SPRAY [Concomitant]
     Route: 065
  9. NITRO-DUR [Concomitant]
     Route: 065
  10. DIOVAN HCT [Concomitant]
     Route: 065

REACTIONS (1)
  - KNEE ARTHROPLASTY [None]
